FAERS Safety Report 16375337 (Version 2)
Quarter: 2019Q2

REPORT INFORMATION
  Report Type: Spontaneous
  Country: US (occurrence: US)
  Receive Date: 20190531
  Receipt Date: 20190604
  Transmission Date: 20190711
  Serious: No
  Sender: FDA-Public Use
  Company Number: US-BIOGEN-2019BI00745078

PATIENT
  Sex: Female

DRUGS (1)
  1. TECFIDERA [Suspect]
     Active Substance: DIMETHYL FUMARATE
     Indication: MULTIPLE SCLEROSIS
     Route: 065
     Dates: start: 20170929

REACTIONS (6)
  - Malaise [Unknown]
  - Concussion [Unknown]
  - Post-traumatic neck syndrome [Unknown]
  - Cystitis [Unknown]
  - Back injury [Unknown]
  - Road traffic accident [Recovered/Resolved]
